FAERS Safety Report 7817737-4 (Version None)
Quarter: 2011Q4

REPORT INFORMATION
  Report Type: 
  Country: None (occurrence: None)
  Receive Date: 20111017
  Receipt Date: 20111013
  Transmission Date: 20120403
  Serious: Yes (Hospitalization, Disabling, Other)
  Sender: FDA-Public Use
  Company Number: US-TEVA-289284USA

PATIENT
  Sex: Female

DRUGS (2)
  1. ALENDRONATE SODIUM [Suspect]
     Indication: OSTEOPENIA
     Dosage: 10 MILLIGRAM;
     Dates: start: 20030901
  2. ALENDRONIC ACID [Suspect]
     Dates: start: 20081001, end: 20100201

REACTIONS (9)
  - ASTHENIA [None]
  - THROMBOSIS [None]
  - PAIN IN EXTREMITY [None]
  - OESOPHAGEAL DISORDER [None]
  - GAIT DISTURBANCE [None]
  - TENDONITIS [None]
  - ACTIVITIES OF DAILY LIVING IMPAIRED [None]
  - FEMUR FRACTURE [None]
  - JOINT RANGE OF MOTION DECREASED [None]
